FAERS Safety Report 12888280 (Version 2)
Quarter: 2017Q4

REPORT INFORMATION
  Report Type: Spontaneous
  Country: IT (occurrence: IT)
  Receive Date: 20161027
  Receipt Date: 20171005
  Transmission Date: 20180320
  Serious: Yes (Hospitalization, Other)
  Sender: FDA-Public Use
  Company Number: IT-BRISTOL-MYERS SQUIBB COMPANY-BMS-2016-086282

PATIENT
  Age: 94 Year
  Sex: Female

DRUGS (10)
  1. LASIX [Concomitant]
     Active Substance: FUROSEMIDE
     Indication: PULMONARY OEDEMA
     Dosage: 1 U, UNK
     Route: 048
     Dates: start: 20090908
  2. UNIPRIL                            /00574902/ [Suspect]
     Active Substance: ENALAPRIL MALEATE
     Indication: HYPERTENSION
     Dosage: 1 U, QD
     Route: 048
     Dates: start: 20070801, end: 20160919
  3. DELTACORTENE [Concomitant]
     Active Substance: PREDNISONE
     Indication: ARTHRITIS
     Dosage: 1 U, UNK
     Route: 048
     Dates: start: 20110912
  4. VENITRIN [Concomitant]
     Active Substance: NITROGLYCERIN
     Indication: ANGINA PECTORIS
     Dosage: 1 U, UNK
     Route: 062
     Dates: start: 20110912
  5. KANRENOL [Concomitant]
     Active Substance: CANRENOATE POTASSIUM
     Indication: HYPERTENSION
     Dosage: 1 U, UNK
     Route: 048
     Dates: start: 20151202
  6. ADENURIC [Concomitant]
     Active Substance: FEBUXOSTAT
     Indication: HYPERURICAEMIA
     Dosage: 1 U, UNK
     Route: 048
     Dates: start: 20151202
  7. COUMADIN [Suspect]
     Active Substance: WARFARIN SODIUM
     Indication: THROMBOSIS PROPHYLAXIS
     Dosage: 1 U, QD
     Route: 048
     Dates: start: 20070801, end: 20160919
  8. DIBASE [Concomitant]
     Active Substance: CHOLECALCIFEROL
     Indication: HYPOVITAMINOSIS
     Dosage: 4 U, UNK
     Route: 048
     Dates: start: 20151202
  9. CONGESCOR [Concomitant]
     Active Substance: BISOPROLOL
     Indication: ATRIAL FIBRILLATION
     Dosage: 1 U, QD
     Route: 048
     Dates: start: 20090908
  10. CRESTOR [Concomitant]
     Active Substance: ROSUVASTATIN CALCIUM
     Indication: HYPERCHOLESTEROLAEMIA
     Dosage: 1 U, UNK
     Route: 048
     Dates: start: 20100924

REACTIONS (3)
  - Blood creatinine increased [Recovering/Resolving]
  - International normalised ratio increased [Recovering/Resolving]
  - Hypotension [Recovering/Resolving]

NARRATIVE: CASE EVENT DATE: 20160919
